FAERS Safety Report 4973514-3 (Version None)
Quarter: 2006Q2

REPORT INFORMATION
  Report Type: 
  Country: None (occurrence: None)
  Receive Date: 20060413
  Receipt Date: 20060413
  Transmission Date: 20061013
  Serious: No
  Sender: FDA-Public Use
  Company Number: None

PATIENT
  Age: 61 Year
  Sex: Female

DRUGS (7)
  1. GENTAMICIN [Suspect]
     Indication: BACTERIAL INFECTION
     Dosage: INTRAVENOUS;430
     Dates: start: 20060226, end: 20060301
  2. PRIMAXIN [Suspect]
     Indication: BACTERIAL INFECTION
     Dosage: INTRAVENOUS;500.0
     Dates: start: 20060223, end: 20060225
  3. METRONIDAZOLE [Concomitant]
  4. CIPROFLOXACIN HCL [Concomitant]
  5. FEXOFENADINE HCL [Concomitant]
  6. ERTAPENEM [Concomitant]
  7. UNASYN [Concomitant]

REACTIONS (4)
  - DRUG ERUPTION [None]
  - RASH MACULO-PAPULAR [None]
  - RASH MORBILLIFORM [None]
  - RASH PRURITIC [None]
